FAERS Safety Report 19283366 (Version 1)
Quarter: 2021Q2

REPORT INFORMATION
  Report Type: Spontaneous
  Country: US (occurrence: US)
  Receive Date: 20210520
  Receipt Date: 20210520
  Transmission Date: 20210717
  Serious: Yes (Hospitalization)
  Sender: FDA-Public Use
  Company Number: US-PAIPHARMA-2021-US-010511

PATIENT
  Age: 63 Year
  Sex: Female
  Weight: 95.26 kg

DRUGS (2)
  1. LACTULOSE SOLUTION USP, AF [Suspect]
     Active Substance: LACTULOSE
     Indication: LIVER DISORDER
     Dosage: 7.5 ML TID (PRESCRIBED AT 30ML TID)
     Route: 048
     Dates: start: 202009
  2. MIDODRINE [Concomitant]
     Active Substance: MIDODRINE

REACTIONS (3)
  - Ammonia increased [Unknown]
  - Product use in unapproved indication [Not Recovered/Not Resolved]
  - Retching [Unknown]

NARRATIVE: CASE EVENT DATE: 202009
